FAERS Safety Report 17374279 (Version 3)
Quarter: 2020Q1

REPORT INFORMATION
  Report Type: Report from Study
  Country: None (occurrence: CH)
  Receive Date: 20200206
  Receipt Date: 20200220
  Transmission Date: 20200409
  Serious: Yes (Death)
  Sender: FDA-Public Use
  Company Number: CH-ABBVIE-20K-151-3264734-00

PATIENT
  Age: 55 Year
  Sex: Male

DRUGS (5)
  1. DUODOPA [Suspect]
     Active Substance: CARBIDOPA\LEVODOPA
     Dosage: MD: 3.1 ML, CD: 3.2 ML/H, CONTINUOUS RATE NIGHT: 2.5 ML/H, ED: 2.2 ML, 24 H THERAPY
     Route: 050
     Dates: start: 20190425
  2. DUODOPA [Suspect]
     Active Substance: CARBIDOPA\LEVODOPA
     Dosage: 20 MG/ML 5 MG/ML
     Route: 050
  3. DUODOPA [Suspect]
     Active Substance: CARBIDOPA\LEVODOPA
     Indication: PARKINSON^S DISEASE
     Route: 050
     Dates: start: 20171213, end: 20180910
  4. DUODOPA [Suspect]
     Active Substance: CARBIDOPA\LEVODOPA
     Dosage: MD: 3.1 ML, CD: 3 ML/H, CONTINUOUS RATE NIGHT: 2 ML/H, ED: 2 ML, 24 H THERAPY
     Route: 050
     Dates: start: 20180910, end: 20190425
  5. DUODOPA [Suspect]
     Active Substance: CARBIDOPA\LEVODOPA
     Dosage: 1 CASSETTE/DAY
     Route: 050

REACTIONS (2)
  - Choking [Fatal]
  - Asphyxia [Fatal]

NARRATIVE: CASE EVENT DATE: 20200202
